FAERS Safety Report 9257242 (Version 1)
Quarter: 2013Q1

REPORT INFORMATION
  Report Type: Spontaneous
  Country: US (occurrence: None)
  Receive Date: 20121212
  Receipt Date: 20121212
  Transmission Date: 20140127
  Serious: No
  Sender: FDA-Public Use
  Company Number: 1210USA002298

PATIENT
  Age: 63 Year
  Sex: 0

DRUGS (3)
  1. PEGINTERFERON ALFA-2B [Suspect]
     Indication: HEPATITIS C
     Dates: start: 20120909
  2. REBETOL [Suspect]
     Indication: HEPATITIS C
     Dates: start: 20120909
  3. VICTRELIS ( BOCEPREVIR) CAPSULE [Suspect]
     Indication: HEPATITIS C
     Dates: start: 20121007

REACTIONS (3)
  - Fatigue [None]
  - Muscular weakness [None]
  - Visual acuity reduced [None]
